FAERS Safety Report 23096501 (Version 3)
Quarter: 2024Q1

REPORT INFORMATION
  Report Type: Spontaneous
  Country: US (occurrence: US)
  Receive Date: 20231023
  Receipt Date: 20240105
  Transmission Date: 20240410
  Serious: No
  Sender: FDA-Public Use
  Company Number: US-PFIZER INC-PV202300172389

PATIENT
  Age: 60 Year
  Sex: Female

DRUGS (1)
  1. RETACRIT [Suspect]
     Active Substance: EPOETIN ALFA-EPBX
     Dosage: 20000 IU, WEEKLY
     Route: 058

REACTIONS (3)
  - General physical health deterioration [Unknown]
  - Product dose omission issue [Unknown]
  - Off label use [Unknown]
